FAERS Safety Report 7833561-0 (Version None)
Quarter: 2011Q4

REPORT INFORMATION
  Report Type: 
  Country: None (occurrence: None)
  Receive Date: 20111020
  Receipt Date: 20111010
  Transmission Date: 20120403
  Serious: Yes (Hospitalization, Other)
  Sender: FDA-Public Use
  Company Number: 2011P1009411

PATIENT
  Age: 19 Month
  Sex: Female

DRUGS (1)
  1. FENTANYL [Suspect]
     Indication: ACCIDENTAL EXPOSURE
     Dosage: 1 PATCH; X1

REACTIONS (18)
  - POSTURING [None]
  - HYPOXIC-ISCHAEMIC ENCEPHALOPATHY [None]
  - SKIN DISCOLOURATION [None]
  - HYPOTHERMIA [None]
  - MIOSIS [None]
  - COMA [None]
  - CONVULSION [None]
  - DECEREBRATION [None]
  - HYPOPNOEA [None]
  - GLUCOSE URINE PRESENT [None]
  - HYPERTONIA [None]
  - AREFLEXIA [None]
  - HAEMOGLOBIN DECREASED [None]
  - LEUKOENCEPHALOPATHY [None]
  - BLOOD GLUCOSE INCREASED [None]
  - DIABETIC KETOACIDOSIS [None]
  - BLOOD PH DECREASED [None]
  - ACCIDENTAL DRUG INTAKE BY CHILD [None]
